FAERS Safety Report 5287996-3 (Version None)
Quarter: 2007Q2

REPORT INFORMATION
  Report Type: 
  Country: None (occurrence: None)
  Receive Date: 20070405
  Receipt Date: 20070329
  Transmission Date: 20071010
  Serious: Yes (Other)
  Sender: FDA-Public Use
  Company Number: TW-JNJFOC-20070307075

PATIENT
  Age: 9 Year
  Sex: Male

DRUGS (2)
  1. OROS METHYLPHENIDATE HYDROCHLORIDE [Suspect]
     Indication: ATTENTION DEFICIT/HYPERACTIVITY DISORDER
  2. METHYLPHENIDATE HCL [Concomitant]

REACTIONS (3)
  - ANOREXIA [None]
  - NAUSEA [None]
  - VOMITING [None]
